FAERS Safety Report 4713608-0 (Version None)
Quarter: 2005Q3

REPORT INFORMATION
  Report Type: 
  Country: None (occurrence: None)
  Receive Date: 20050713
  Receipt Date: 20050602
  Transmission Date: 20060218
  Serious: Yes (Hospitalization)
  Sender: FDA-Public Use
  Company Number: PHHO2005JP08907

PATIENT
  Age: 73 Year
  Sex: Male
  Weight: 86 kg

DRUGS (3)
  1. DIOVAN [Suspect]
     Indication: HYPERTENSION
     Dosage: 80 MG, QD
     Route: 048
     Dates: start: 20030320
  2. PANALDINE [Suspect]
     Indication: THROMBOSIS PROPHYLAXIS
     Dosage: 100 MG, QD
     Route: 048
     Dates: start: 20000120
  3. DIGOXIN [Suspect]
     Dosage: 0.25 MG, QD
     Route: 048
     Dates: start: 20040318

REACTIONS (6)
  - C-REACTIVE PROTEIN INCREASED [None]
  - DRUG EFFECT DECREASED [None]
  - LOCAL SWELLING [None]
  - LYMPHADENECTOMY [None]
  - LYMPHADENITIS [None]
  - LYMPHOMA [None]
